FAERS Safety Report 5851078-X (Version None)
Quarter: 2008Q3

REPORT INFORMATION
  Report Type: 
  Country: None (occurrence: None)
  Receive Date: 20080818
  Receipt Date: 20080801
  Transmission Date: 20090109
  Serious: Yes (Death)
  Sender: FDA-Public Use
  Company Number: 8035796

PATIENT
  Age: 41 Year
  Sex: Male

DRUGS (6)
  1. PREDNISOLONE [Suspect]
     Indication: LIVER TRANSPLANT
  2. PREDNISOLONE [Suspect]
     Indication: RENAL TRANSPLANT
  3. CYCLOSPORINE [Suspect]
     Indication: LIVER TRANSPLANT
  4. CYCLOSPORINE [Suspect]
     Indication: RENAL TRANSPLANT
  5. CYCLOPHOSPHAMIDE [Suspect]
     Indication: LIVER TRANSPLANT
  6. CYCLOPHOSPHAMIDE [Suspect]
     Indication: RENAL TRANSPLANT

REACTIONS (9)
  - ABDOMINAL PAIN [None]
  - ARTERIAL INJURY [None]
  - ARTERITIS INFECTIVE [None]
  - ASPERGILLOSIS [None]
  - BLOOD PRESSURE DECREASED [None]
  - DYSPNOEA [None]
  - HEPATIC HAEMORRHAGE [None]
  - MUCORMYCOSIS [None]
  - MULTI-ORGAN FAILURE [None]
